FAERS Safety Report 9445201 (Version 1)
Quarter: 2013Q3

REPORT INFORMATION
  Report Type: Report from Study
  Country: CH (occurrence: CH)
  Receive Date: 20130807
  Receipt Date: 20130807
  Transmission Date: 20140515
  Serious: Yes (Death, Hospitalization)
  Sender: FDA-Public Use
  Company Number: CH-GLAXOSMITHKLINE-B0891995A

PATIENT
  Age: 44 Year
  Sex: Male
  Weight: 70 kg

DRUGS (9)
  1. DABRAFENIB [Suspect]
     Indication: MALIGNANT MELANOMA
     Route: 048
     Dates: start: 20130502, end: 20130512
  2. TRAMETINIB [Suspect]
     Indication: MALIGNANT MELANOMA
     Route: 048
     Dates: start: 20130502, end: 20130512
  3. CIPRALEX [Suspect]
     Indication: DEPRESSION
     Route: 048
     Dates: start: 20130501
  4. KEPPRA [Suspect]
     Indication: EPILEPSY
  5. NOVALGIN [Suspect]
     Indication: BACK PAIN
  6. DEXAMETHASONE [Concomitant]
     Indication: METASTASES TO CENTRAL NERVOUS SYSTEM
     Route: 048
     Dates: start: 20130206, end: 20130512
  7. VALPROIC ACID [Concomitant]
     Indication: METASTASES TO CENTRAL NERVOUS SYSTEM
     Dosage: 600MG TWICE PER DAY
     Route: 048
     Dates: start: 20130208, end: 20130512
  8. FORTECORTIN [Concomitant]
     Indication: BRAIN OEDEMA
  9. ORFIRIL [Concomitant]
     Indication: EPILEPSY

REACTIONS (2)
  - Pyrexia [Recovered/Resolved]
  - Sudden death [Fatal]
